FAERS Safety Report 11166768 (Version 7)
Quarter: 2015Q3

REPORT INFORMATION
  Report Type: Report from Study
  Country: AU (occurrence: AU)
  Receive Date: 20150605
  Receipt Date: 20150924
  Transmission Date: 20151125
  Serious: Yes (Other)
  Sender: FDA-Public Use
  Company Number: AU-ROCHE-1574519

PATIENT
  Age: 69 Year
  Sex: Female

DRUGS (1)
  1. ACTEMRA [Suspect]
     Active Substance: TOCILIZUMAB
     Indication: RHEUMATOID ARTHRITIS
     Route: 042
     Dates: start: 20100324

REACTIONS (8)
  - Fall [Unknown]
  - Contusion [Recovered/Resolved]
  - Swelling [Recovered/Resolved]
  - Pain in extremity [Unknown]
  - Tooth disorder [Not Recovered/Not Resolved]
  - Gingivitis [Recovered/Resolved]
  - Toothache [Recovered/Resolved]
  - Tenderness [Recovered/Resolved]

NARRATIVE: CASE EVENT DATE: 20150427
